FAERS Safety Report 16435937 (Version 1)
Quarter: 2019Q2

REPORT INFORMATION
  Report Type: Spontaneous
  Country: US (occurrence: US)
  Receive Date: 20190614
  Receipt Date: 20190614
  Transmission Date: 20190711
  Serious: No
  Sender: FDA-Public Use
  Company Number: US-JNJFOC-20170332871

PATIENT
  Sex: Male

DRUGS (27)
  1. COQ10 [Concomitant]
     Active Substance: UBIDECARENONE
     Indication: NUTRITIONAL SUPPLEMENTATION
     Dosage: YEARS
     Route: 065
  2. ALEVE [Concomitant]
     Active Substance: NAPROXEN SODIUM
     Indication: BACK PAIN
     Route: 065
  3. ACIPHEX [Concomitant]
     Active Substance: RABEPRAZOLE SODIUM
     Indication: GASTROOESOPHAGEAL REFLUX DISEASE
     Route: 065
  4. METAMUCIL [Concomitant]
     Active Substance: PLANTAGO SEED
     Indication: NUTRITIONAL SUPPLEMENTATION
     Dosage: DOSAGE: UNKNOWN/MORNING, YEARS
     Route: 065
  5. ASPIRIN. [Concomitant]
     Active Substance: ASPIRIN
     Indication: CARDIAC DISORDER
     Dosage: YEARS
     Route: 065
  6. TYLENOL 8 HR ARTHRITIS PAIN [Suspect]
     Active Substance: ACETAMINOPHEN
     Indication: PROCEDURAL PAIN
     Route: 048
  7. LIPITOR [Concomitant]
     Active Substance: ATORVASTATIN CALCIUM
     Indication: BLOOD CHOLESTEROL INCREASED
     Route: 065
  8. QUININE [Concomitant]
     Active Substance: QUININE
     Indication: MUSCLE SPASMS
     Route: 065
  9. TOPROL XL [Concomitant]
     Active Substance: METOPROLOL SUCCINATE
     Indication: HYPERTENSION
     Route: 065
  10. CENTRUM [Concomitant]
     Active Substance: VITAMINS
     Indication: NUTRITIONAL SUPPLEMENTATION
     Route: 065
  11. TYLENOL 8 HR ARTHRITIS PAIN [Suspect]
     Active Substance: ACETAMINOPHEN
     Indication: INFLAMMATION
     Route: 048
  12. TYLENOL 8 HR ARTHRITIS PAIN [Suspect]
     Active Substance: ACETAMINOPHEN
     Indication: PAIN
     Route: 048
  13. ADVIL [Concomitant]
     Active Substance: IBUPROFEN
     Indication: SWELLING
     Dosage: 3 X A DAY
     Route: 065
  14. FLAXSEED [Concomitant]
     Active Substance: FLAX SEED
     Indication: NUTRITIONAL SUPPLEMENTATION
     Dosage: YEARS
     Route: 065
  15. GLUCOSAMINE MSM [Concomitant]
     Indication: NUTRITIONAL SUPPLEMENTATION
     Route: 065
  16. SODIUM [Concomitant]
     Active Substance: SODIUM
     Indication: PRODUCT USED FOR UNKNOWN INDICATION
     Route: 065
  17. TYLENOL 8 HR ARTHRITIS PAIN [Suspect]
     Active Substance: ACETAMINOPHEN
     Indication: ARTHRALGIA
     Route: 048
  18. TYLENOL 8 HR ARTHRITIS PAIN [Suspect]
     Active Substance: ACETAMINOPHEN
     Indication: PAIN
     Route: 048
  19. TYLENOL 8 HR ARTHRITIS PAIN [Suspect]
     Active Substance: ACETAMINOPHEN
     Indication: SWELLING
     Route: 048
  20. DIOVAN [Concomitant]
     Active Substance: VALSARTAN
     Indication: HYPERTENSION
     Dosage: YEARS
     Route: 065
  21. CALCIUM W/MAGNESIUM GLUCONATE [Concomitant]
     Indication: NUTRITIONAL SUPPLEMENTATION
     Dosage: DOSE: 500/80MG, YEARS
     Route: 065
  22. PROBIOTIC COMPLEX [Concomitant]
     Indication: NUTRITIONAL SUPPLEMENTATION
     Route: 065
  23. TYLENOL 8 HR ARTHRITIS PAIN [Suspect]
     Active Substance: ACETAMINOPHEN
     Indication: PROCEDURAL PAIN
     Route: 048
  24. TYLENOL 8 HR ARTHRITIS PAIN [Suspect]
     Active Substance: ACETAMINOPHEN
     Indication: ARTHRALGIA
     Route: 048
  25. TYLENOL 8 HR ARTHRITIS PAIN [Suspect]
     Active Substance: ACETAMINOPHEN
     Indication: INFLAMMATION
     Route: 048
  26. TYLENOL 8 HR ARTHRITIS PAIN [Suspect]
     Active Substance: ACETAMINOPHEN
     Indication: SWELLING
     Route: 048
  27. ADVIL [Concomitant]
     Active Substance: IBUPROFEN
     Indication: INFLAMMATION
     Dosage: 3 X A DAY
     Route: 065

REACTIONS (2)
  - Drug ineffective for unapproved indication [Unknown]
  - Drug ineffective [Unknown]
